FAERS Safety Report 21652341 (Version 1)
Quarter: 2022Q4

REPORT INFORMATION
  Report Type: Report from Study
  Country: US (occurrence: None)
  Receive Date: 20221128
  Receipt Date: 20221128
  Transmission Date: 20230112
  Serious: Yes (Hospitalization)
  Sender: FDA-Public Use
  Company Number: 2022A388642

PATIENT
  Sex: Female

DRUGS (3)
  1. TAGRISSO [Suspect]
     Active Substance: OSIMERTINIB
     Indication: Pleural effusion
     Route: 048
     Dates: start: 202209
  2. TAGRISSO [Suspect]
     Active Substance: OSIMERTINIB
     Indication: Muscular weakness
     Route: 048
     Dates: start: 202209
  3. ELIQUIS [Concomitant]
     Active Substance: APIXABAN
     Route: 065

REACTIONS (1)
  - Deep vein thrombosis [Unknown]
